FAERS Safety Report 4409677-8 (Version None)
Quarter: 2004Q3

REPORT INFORMATION
  Report Type: 
  Country: None (occurrence: None)
  Receive Date: 20040727
  Receipt Date: 20040727
  Transmission Date: 20050211
  Serious: Yes (Hospitalization)
  Sender: FDA-Public Use
  Company Number: None

PATIENT
  Age: 60 Year
  Sex: Male

DRUGS (1)
  1. CYPHER STENT [Suspect]

REACTIONS (4)
  - ANGINA UNSTABLE [None]
  - STENT OCCLUSION [None]
  - SURGICAL PROCEDURE REPEATED [None]
  - THROMBOSIS [None]
